FAERS Safety Report 18684390 (Version 2)
Quarter: 2020Q4

REPORT INFORMATION
  Report Type: Spontaneous
  Country: IT (occurrence: IT)
  Receive Date: 20201230
  Receipt Date: 20201231
  Transmission Date: 20210114
  Serious: Yes (Hospitalization)
  Sender: FDA-Public Use
  Company Number: IT-TEVA-2020-IT-1863359

PATIENT
  Age: 63 Year
  Sex: Female

DRUGS (5)
  1. AKINETON [Suspect]
     Active Substance: BIPERIDEN HYDROCHLORIDE
     Dosage: 4 MG
     Route: 048
     Dates: start: 20201211, end: 20201211
  2. CLOZAPINE. [Suspect]
     Active Substance: CLOZAPINE
     Dosage: 150 MG
     Route: 048
     Dates: start: 20201211, end: 20201211
  3. CONTROL [LORAZEPAM] [Suspect]
     Active Substance: LORAZEPAM
     Dosage: 2.5 MG
     Route: 048
     Dates: start: 20201211, end: 20201211
  4. TOLEP [Suspect]
     Active Substance: OXCARBAZEPINE
     Dosage: 300 MG
     Route: 048
     Dates: start: 20201211, end: 20201211
  5. PROZIN (PROMETHAZINE HYDROCHLORIDE) [Suspect]
     Active Substance: PROMETHAZINE HYDROCHLORIDE
     Dosage: 50 MG
     Route: 048
     Dates: start: 20201211, end: 20201211

REACTIONS (2)
  - Wrong patient received product [Recovering/Resolving]
  - Sopor [Recovering/Resolving]

NARRATIVE: CASE EVENT DATE: 20201211
